FAERS Safety Report 21903510 (Version 3)
Quarter: 2023Q1

REPORT INFORMATION
  Report Type: Report from Study
  Country: IN (occurrence: IN)
  Receive Date: 20230124
  Receipt Date: 20230306
  Transmission Date: 20230417
  Serious: Yes (Other)
  Sender: FDA-Public Use
  Company Number: IN-002147023-NVSC2023IN013174

PATIENT
  Age: 37 Year
  Sex: Male

DRUGS (5)
  1. SECUKINUMAB [Suspect]
     Active Substance: SECUKINUMAB
     Indication: Spondyloarthropathy
     Dosage: 150 MG, QMO (0, 2ND, 4TH THEN 4 WEEKLY)
     Route: 058
  2. SECUKINUMAB [Suspect]
     Active Substance: SECUKINUMAB
     Dosage: UNK
     Route: 065
     Dates: start: 20221220
  3. SECUKINUMAB [Suspect]
     Active Substance: SECUKINUMAB
     Dosage: 150 MG, QMO
     Route: 058
     Dates: start: 20230119
  4. ETOSHINE [Concomitant]
     Indication: Product used for unknown indication
     Dosage: UNK
     Route: 065
  5. RACIPER D [Concomitant]
     Indication: Product used for unknown indication
     Dosage: UNK
     Route: 065

REACTIONS (7)
  - Haemorrhage [Unknown]
  - Inflammatory bowel disease [Unknown]
  - Arthropathy [Unknown]
  - Musculoskeletal stiffness [Unknown]
  - Haemoglobin abnormal [Unknown]
  - Product use in unapproved indication [Unknown]
  - Red blood cell sedimentation rate abnormal [Unknown]
